FAERS Safety Report 20802902 (Version 1)
Quarter: 2022Q2

REPORT INFORMATION
  Report Type: Spontaneous
  Country: DE (occurrence: DE)
  Receive Date: 20220509
  Receipt Date: 20220509
  Transmission Date: 20220720
  Serious: Yes (Other)
  Sender: FDA-Public Use
  Company Number: DE-ABBVIE-22K-062-4379251-00

PATIENT
  Age: 70 Year
  Sex: Male

DRUGS (3)
  1. VENETOCLAX [Suspect]
     Active Substance: VENETOCLAX
     Indication: Acute myeloid leukaemia
     Route: 048
     Dates: start: 202101
  2. DECITABINE [Concomitant]
     Active Substance: DECITABINE
     Indication: Bicytopenia
     Dosage: 20MG/M2?5 DAY PERIOD
     Route: 065
     Dates: start: 202106
  3. DECITABINE [Concomitant]
     Active Substance: DECITABINE
     Dosage: 3 DAY PERIODS
     Route: 065

REACTIONS (6)
  - Myeloproliferative neoplasm [Unknown]
  - Platelet count abnormal [Unknown]
  - Herpes zoster [Unknown]
  - Aphthous ulcer [Unknown]
  - Urinary tract infection [Unknown]
  - Anaemia [Unknown]

NARRATIVE: CASE EVENT DATE: 20211201
